FAERS Safety Report 11265882 (Version 1)
Quarter: 2015Q3

REPORT INFORMATION
  Report Type: Spontaneous
  Country: CA (occurrence: CA)
  Receive Date: 20150713
  Receipt Date: 20150713
  Transmission Date: 20151125
  Serious: Yes (Other)
  Sender: FDA-Public Use
  Company Number: CA-GE HEALTHCARE MEDICAL DIAGNOSTICS-OMPQ-PR-1507S-1061

PATIENT
  Age: 55 Year
  Sex: Male

DRUGS (2)
  1. OMNIPAQUE [Suspect]
     Active Substance: IOHEXOL
     Indication: PRODUCT USED FOR UNKNOWN INDICATION
     Route: 042
     Dates: start: 20150702, end: 20150702
  2. OMNIPAQUE [Suspect]
     Active Substance: IOHEXOL
     Indication: DIAGNOSTIC PROCEDURE

REACTIONS (4)
  - Throat tightness [Recovered/Resolved]
  - Nasal congestion [Recovered/Resolved]
  - Sneezing [Recovered/Resolved]
  - Tongue disorder [Recovered/Resolved]

NARRATIVE: CASE EVENT DATE: 20150702
